FAERS Safety Report 11092639 (Version 1)
Quarter: 2015Q2

REPORT INFORMATION
  Report Type: Spontaneous
  Country: HK (occurrence: None)
  Receive Date: 20150504
  Receipt Date: 20150504
  Transmission Date: 20150821
  Serious: Yes (Other)
  Sender: FDA-Public Use
  Company Number: IPC201504-000274

PATIENT
  Age: 31 Year
  Sex: Female

DRUGS (2)
  1. ETHANOL [Suspect]
     Active Substance: ALCOHOL
  2. PROPRANOLOL HYDROCHLORIDE (PROPRANOLOL HYDROCHLORIDE) (PROPRANOLOL HYDROCHLORIDE) [Suspect]
     Active Substance: PROPRANOLOL HYDROCHLORIDE

REACTIONS (3)
  - Cardiotoxicity [None]
  - Shock [None]
  - Electrocardiogram QRS complex prolonged [None]
